FAERS Safety Report 7487453-X (Version None)
Quarter: 2011Q1

REPORT INFORMATION
  Report Type: 
  Country: None (occurrence: None)
  Receive Date: 20110309
  Receipt Date: 20101123
  Transmission Date: 20110831
  Serious: No
  Sender: FDA-Public Use
  Company Number: 2010SP061584

PATIENT
  Age: 22 Year
  Sex: Male

DRUGS (1)
  1. SAPHRIS [Suspect]
     Indication: OFF LABEL USE
     Dosage: 15 MG;QD;SL
     Route: 060

REACTIONS (3)
  - INCREASED APPETITE [None]
  - WEIGHT INCREASED [None]
  - OFF LABEL USE [None]
